FAERS Safety Report 8489476-0 (Version None)
Quarter: 2012Q3

REPORT INFORMATION
  Report Type: 
  Country: None (occurrence: None)
  Receive Date: 20120705
  Receipt Date: 20120629
  Transmission Date: 20120928
  Serious: No
  Sender: FDA-Public Use
  Company Number: US-PFIZER INC-2012141705

PATIENT
  Sex: Female
  Weight: 61.224 kg

DRUGS (7)
  1. PREMARIN [Suspect]
     Indication: HOT FLUSH
     Dosage: 1.25 MG, DAILY
     Dates: start: 19900101
  2. PREMARIN [Suspect]
     Dosage: 0.9 MG, DAILY
  3. ATENOLOL [Concomitant]
     Indication: HYPERTENSION
  4. ATENOLOL [Concomitant]
     Indication: HEADACHE
     Dosage: 50 MG, DAILY
  5. PREMARIN [Suspect]
     Dosage: 0.3 MG, DAILY
  6. PREMARIN [Suspect]
     Dosage: UNK
  7. PREMARIN [Suspect]
     Dosage: 0.625 MG, DAILY

REACTIONS (1)
  - MIGRAINE [None]
